FAERS Safety Report 5485556-2 (Version None)
Quarter: 2007Q4

REPORT INFORMATION
  Report Type: 
  Country: None (occurrence: None)
  Receive Date: 20071011
  Receipt Date: 20071011
  Transmission Date: 20080405
  Serious: No
  Sender: FDA-Public Use
  Company Number: None

PATIENT
  Sex: Male
  Weight: 75.7 kg

DRUGS (3)
  1. TEMOZOLOMIDE [Suspect]
     Dosage: 4900 MG
  2. TEMOZOLOMIDE [Suspect]
  3. DECADRON [Concomitant]

REACTIONS (2)
  - CATHETER RELATED COMPLICATION [None]
  - JUGULAR VEIN THROMBOSIS [None]
